FAERS Safety Report 21845530 (Version 2)
Quarter: 2024Q1

REPORT INFORMATION
  Report Type: Spontaneous
  Country: NL (occurrence: NL)
  Receive Date: 20230111
  Receipt Date: 20240202
  Transmission Date: 20240409
  Serious: Yes (Other)
  Sender: FDA-Public Use
  Company Number: NL-LRB-00856588

PATIENT
  Sex: Female
  Weight: 65 kg

DRUGS (2)
  1. PREGABALIN [Suspect]
     Active Substance: PREGABALIN
     Indication: Neuralgia
     Dosage: 1 X 75 FOR THE NIGHT
     Route: 065
     Dates: start: 20210720, end: 20221125
  2. PREGABALIN [Suspect]
     Active Substance: PREGABALIN
     Indication: Neuralgia
     Dosage: 1 X 25 MG MORNING
     Route: 065
     Dates: start: 20210720, end: 20221125

REACTIONS (1)
  - Suicidal ideation [Recovered/Resolved]
